FAERS Safety Report 15457727 (Version 2)
Quarter: 2018Q4

REPORT INFORMATION
  Report Type: Spontaneous
  Country: TN (occurrence: TN)
  Receive Date: 20181003
  Receipt Date: 20181004
  Transmission Date: 20190204
  Serious: Yes (Other)
  Sender: FDA-Public Use
  Company Number: TN-REGENERON PHARMACEUTICALS, INC.-2018-38895

PATIENT

DRUGS (1)
  1. EYLEA [Suspect]
     Active Substance: AFLIBERCEPT
     Indication: DIABETIC RETINAL OEDEMA
     Dosage: LEFT EYE, TOTAL EYLEA DOSE AND THE LAST DOSE PRIOR EVENT WERE NOT REPORTED
     Route: 031

REACTIONS (4)
  - Vitritis [Recovered/Resolved]
  - Anterior chamber cell [Recovered/Resolved]
  - Blindness transient [Recovered/Resolved]
  - Vitreous floaters [Recovered/Resolved]
